FAERS Safety Report 9456414 (Version 1)
Quarter: 2013Q3

REPORT INFORMATION
  Report Type: Spontaneous
  Country: FR (occurrence: None)
  Receive Date: 20130809
  Receipt Date: 20130809
  Transmission Date: 20140515
  Serious: Yes (Other)
  Sender: FDA-Public Use
  Company Number: ACO_37693_2013

PATIENT
  Age: 69 Year
  Sex: Female

DRUGS (4)
  1. FAMPYRA [Suspect]
     Indication: GAIT DISTURBANCE
     Route: 048
     Dates: start: 20130617, end: 20130630
  2. CRESTOR [Concomitant]
  3. LIORESAL [Concomitant]
  4. LEVOTHYROX (LEVOTHYROXINE SODIUM) INFUSION [Concomitant]

REACTIONS (5)
  - Paraesthesia [None]
  - Balance disorder [None]
  - Dysgeusia [None]
  - Constipation [None]
  - Dyspepsia [None]
